FAERS Safety Report 4922112-6 (Version None)
Quarter: 2006Q1

REPORT INFORMATION
  Report Type: 
  Country: None (occurrence: None)
  Receive Date: 20060222
  Receipt Date: 20060222
  Transmission Date: 20060701
  Serious: Yes (Hospitalization)
  Sender: FDA-Public Use
  Company Number: None

PATIENT
  Age: 76 Year
  Sex: Male
  Weight: 110 kg

DRUGS (11)
  1. PLAVIX [Suspect]
     Dosage: 75 MG DAILY PO
     Route: 048
     Dates: start: 20051025, end: 20051102
  2. PLAVIX [Suspect]
     Dosage: 75 MG DAILY PO
     Route: 048
     Dates: start: 20051115
  3. TICLID [Concomitant]
     Dosage: 250 MG BID PO
     Route: 048
     Dates: start: 20051102, end: 20051105
  4. NTG SL [Concomitant]
  5. LEVOTHYROXINE SODIUM [Concomitant]
  6. HYDROCHLOROTHIAZIDE [Concomitant]
  7. METOPROLOL [Concomitant]
  8. ROSIGLITAZONE [Concomitant]
  9. LISINOPRIL [Concomitant]
  10. GLYBURIDE [Concomitant]
  11. ATORVASTATIN CALCIUM [Concomitant]

REACTIONS (5)
  - BURNING SENSATION [None]
  - DRUG INEFFECTIVE [None]
  - FEELING HOT [None]
  - PRURITUS [None]
  - RASH MACULAR [None]
